FAERS Safety Report 14345557 (Version 1)
Quarter: 2017Q4

REPORT INFORMATION
  Report Type: Spontaneous
  Country: US (occurrence: US)
  Receive Date: 20171230
  Receipt Date: 20171230
  Transmission Date: 20180321
  Serious: Yes (Other)
  Sender: FDA-Public Use
  Company Number: None

PATIENT
  Age: 60 Year
  Sex: Female

DRUGS (1)
  1. IMATINIB 400MG SUN PHARMACEUTICAL [Suspect]
     Active Substance: IMATINIB
     Indication: NEOPLASM MALIGNANT
     Route: 048
     Dates: start: 20170329

REACTIONS (2)
  - Orgasm abnormal [None]
  - Dyspareunia [None]

NARRATIVE: CASE EVENT DATE: 20171125
